FAERS Safety Report 9655508 (Version 1)
Quarter: 2013Q4

REPORT INFORMATION
  Report Type: Spontaneous
  Country: US (occurrence: US)
  Receive Date: 20131029
  Receipt Date: 20131029
  Transmission Date: 20140711
  Serious: Yes (Other)
  Sender: FDA-Public Use
  Company Number: US-RB-059990-13

PATIENT
  Age: 35 Year
  Sex: Female

DRUGS (3)
  1. SUBOXONE FILM [Suspect]
     Dosage: SUBOXONE FILM; DOSAGE DETAILS UNKNOWN
     Route: 060
     Dates: end: 2013
  2. SUBOXONE FILM [Suspect]
     Indication: DRUG DEPENDENCE
     Dosage: SUBOXONE FILM; VARIOUS UNKNOWN DOSING; CUTTING INTO 6 PIECES AND TAKING 1 PIECE DAILY
     Route: 060
     Dates: start: 2013
  3. PRENATAL VITAMINS [Concomitant]
     Indication: PREGNANCY
     Dosage: WAS TAKING ONE DAILY (UNKNOWN DOSE).
     Route: 048
     Dates: start: 201301, end: 201308

REACTIONS (8)
  - Substance abuse [Not Recovered/Not Resolved]
  - Maternal exposure during pregnancy [Recovered/Resolved]
  - Wrong technique in drug usage process [Not Recovered/Not Resolved]
  - Underdose [Not Recovered/Not Resolved]
  - Pre-eclampsia [Recovered/Resolved]
  - Hypertension [Recovered/Resolved]
  - Premature delivery [Recovered/Resolved]
  - Labour induction [Recovered/Resolved]
